FAERS Safety Report 4405316-0 (Version None)
Quarter: 2004Q3

REPORT INFORMATION
  Report Type: 
  Country: None (occurrence: None)
  Receive Date: 20040723
  Receipt Date: 20040714
  Transmission Date: 20050211
  Serious: Yes (Death, Hospitalization)
  Sender: FDA-Public Use
  Company Number: US-BRISTOL-MYERS SQUIBB COMPANY-12643706

PATIENT
  Age: 24 Year
  Sex: Female

DRUGS (1)
  1. CEENU [Suspect]
     Indication: CARCINOMA

REACTIONS (4)
  - BONE MARROW DEPRESSION [None]
  - HAEMORRHAGE [None]
  - MEDICATION ERROR [None]
  - OVERDOSE [None]
